FAERS Safety Report 15974346 (Version 2)
Quarter: 2019Q1

REPORT INFORMATION
  Report Type: Report from Study
  Country: None (occurrence: CA)
  Receive Date: 20190218
  Receipt Date: 20190323
  Transmission Date: 20190418
  Serious: Yes (Other)
  Sender: FDA-Public Use
  Company Number: CA-ABBVIE-18K-028-2491380-00

PATIENT
  Sex: Female
  Weight: 143.01 kg

DRUGS (2)
  1. HUMIRA [Suspect]
     Active Substance: ADALIMUMAB
     Indication: HIDRADENITIS
     Route: 058
     Dates: start: 20161209, end: 20180903
  2. HUMIRA [Suspect]
     Active Substance: ADALIMUMAB
     Route: 058
     Dates: start: 20181028

REACTIONS (5)
  - Mastitis [Unknown]
  - Abdominal pain upper [Recovered/Resolved]
  - Hysterectomy [Unknown]
  - Drug effect decreased [Not Recovered/Not Resolved]
  - Hidradenitis [Not Recovered/Not Resolved]

NARRATIVE: CASE EVENT DATE: 2018
